FAERS Safety Report 6190942-1 (Version None)
Quarter: 2009Q2

REPORT INFORMATION
  Report Type: 
  Country: None (occurrence: None)
  Receive Date: 20090514
  Receipt Date: 20090506
  Transmission Date: 20091009
  Serious: Yes (Hospitalization, Congenital Anomaly)
  Sender: FDA-Public Use
  Company Number: GB-MERCK-0905GBR00016

PATIENT
  Sex: Female

DRUGS (2)
  1. TIMOPTIC [Suspect]
     Indication: GLAUCOMA
     Route: 064
  2. LATANOPROST [Suspect]
     Indication: GLAUCOMA
     Route: 064

REACTIONS (1)
  - NOSE DEFORMITY [None]
